FAERS Safety Report 4566487-9 (Version None)
Quarter: 2005Q1

REPORT INFORMATION
  Report Type: 
  Country: None (occurrence: None)
  Receive Date: 20050128
  Receipt Date: 20050121
  Transmission Date: 20050727
  Serious: Yes (Hospitalization, Other)
  Sender: FDA-Public Use
  Company Number: KII-2005-0014786

PATIENT
  Age: 23 Year
  Sex: Male

DRUGS (5)
  1. OXYCONTIN [Suspect]
     Dosage: ORAL
     Route: 048
  2. SEROQUEL [Suspect]
     Dosage: ORAL
     Route: 048
  3. THIAZOLIDNEDIONE () [Suspect]
     Dosage: ORAL
     Route: 048
  4. ANTIPSYCHOTICS () [Suspect]
     Dosage: ORAL
     Route: 048
  5. BENZODIAZEPINES DERIVATIVES () [Suspect]
     Dosage: ORAL
     Route: 048

REACTIONS (17)
  - AGGRESSION [None]
  - AGITATION [None]
  - ANION GAP INCREASED [None]
  - BLOOD CREATINE PHOSPHOKINASE INCREASED [None]
  - BLOOD CREATINE PHOSPHOKINASE MB INCREASED [None]
  - BLOOD GLUCOSE DECREASED [None]
  - BLOOD GLUCOSE INCREASED [None]
  - CONFUSIONAL STATE [None]
  - DISORIENTATION [None]
  - HALLUCINATION [None]
  - HEART RATE INCREASED [None]
  - HYPERHIDROSIS [None]
  - LOSS OF CONSCIOUSNESS [None]
  - MULTIPLE DRUG OVERDOSE [None]
  - POLYSUBSTANCE ABUSE [None]
  - TREMOR [None]
  - WHITE BLOOD CELL COUNT INCREASED [None]
